FAERS Safety Report 9404757 (Version 1)
Quarter: 2013Q3

REPORT INFORMATION
  Report Type: Report from Study
  Country: BR (occurrence: BR)
  Receive Date: 20130717
  Receipt Date: 20130717
  Transmission Date: 20140515
  Serious: Yes (Death)
  Sender: FDA-Public Use
  Company Number: PHHY2013BR075691

PATIENT
  Sex: Male

DRUGS (8)
  1. RASILEZ [Suspect]
     Dosage: 150 MG, UNK
  2. RASILEZ [Suspect]
     Dosage: 300 MG, UNK
  3. RASILEZ AMLO [Suspect]
     Dosage: (ALIS 150 MG, AMLO 5 MG)
  4. RASILEZ AMLO [Suspect]
     Dosage: (ALIS 300 MG, AMLO 5 MG)
  5. RASILEZ HCT [Suspect]
     Dosage: (ALIS 150 MG HCTZ 12.5 MG)
  6. RASILEZ HCT [Suspect]
     Dosage: (ALIS 150 MG HCTZ 25 MG)
  7. RASILEZ HCT [Suspect]
     Dosage: (ALIS 300 MG HCTZ 12.5 MG)
  8. RASILEZ HCT [Suspect]
     Dosage: (ALIS 300 MG HCTZ 25 MG)

REACTIONS (1)
  - Cerebrovascular accident [Fatal]
